FAERS Safety Report 7001628-5 (Version None)
Quarter: 2010Q3

REPORT INFORMATION
  Report Type: 
  Country: None (occurrence: None)
  Receive Date: 20100917
  Receipt Date: 20100917
  Transmission Date: 20110219
  Serious: Yes (Life-Threatening, Disabling, Other)
  Sender: FDA-Public Use
  Company Number: None

PATIENT
  Sex: Female
  Weight: 81.6475 kg

DRUGS (3)
  1. HYDROCHLOROTHIAZIDE [Suspect]
     Indication: HYPERTENSION
     Dosage: 25MG OFTEN
     Dates: start: 20020101, end: 20100101
  2. HYDROXYZ [Concomitant]
  3. AMLODIPINE [Concomitant]

REACTIONS (18)
  - ASTHENIA [None]
  - BLOOD POTASSIUM DECREASED [None]
  - BONE PAIN [None]
  - CARDIAC FLUTTER [None]
  - DIZZINESS [None]
  - DRY EYE [None]
  - DRY MOUTH [None]
  - DRY SKIN [None]
  - DYSPNOEA [None]
  - FATIGUE [None]
  - HEPATIC FUNCTION ABNORMAL [None]
  - IMMOBILE [None]
  - INSOMNIA [None]
  - MUSCULOSKELETAL STIFFNESS [None]
  - NERVOUS SYSTEM DISORDER [None]
  - PRURITUS [None]
  - SKIN ULCER [None]
  - SWELLING [None]
